FAERS Safety Report 20238202 (Version 11)
Quarter: 2024Q4

REPORT INFORMATION
  Report Type: Report from Study
  Country: DE (occurrence: DE)
  Receive Date: 20211228
  Receipt Date: 20241210
  Transmission Date: 20250114
  Serious: Yes (Hospitalization, Other)
  Sender: MYLAN
  Company Number: DE-ROCHE-2082700

PATIENT
  Age: 57 Year
  Sex: Male

DRUGS (23)
  1. PREGABALIN [Suspect]
     Active Substance: PREGABALIN
     Indication: Product used for unknown indication
     Dosage: UNK
     Route: 065
  2. OCREVUS [Suspect]
     Active Substance: OCRELIZUMAB
     Indication: Relapsing-remitting multiple sclerosis
     Dosage: 300 MILLIGRAM, Q2W
     Route: 042
     Dates: start: 20180222
  3. OCREVUS [Suspect]
     Active Substance: OCRELIZUMAB
     Indication: Primary progressive multiple sclerosis
     Dosage: UNK
     Route: 042
     Dates: start: 20180308
  4. OCREVUS [Suspect]
     Active Substance: OCRELIZUMAB
     Dosage: 600 MILLIGRAM
     Route: 042
     Dates: start: 20180913, end: 20180913
  5. OCREVUS [Suspect]
     Active Substance: OCRELIZUMAB
     Dosage: 600 MILLIGRAM
     Route: 042
     Dates: start: 20190315
  6. OCREVUS [Suspect]
     Active Substance: OCRELIZUMAB
     Dosage: 600 MILLIGRAM
     Route: 042
     Dates: start: 20190902
  7. OCREVUS [Suspect]
     Active Substance: OCRELIZUMAB
     Dosage: 600 MILLIGRAM
     Route: 042
     Dates: start: 20200218
  8. OCREVUS [Suspect]
     Active Substance: OCRELIZUMAB
     Dosage: 600 MILLIGRAM, EVERY 188 DAYS
     Route: 042
     Dates: start: 20201014
  9. OCREVUS [Suspect]
     Active Substance: OCRELIZUMAB
     Dosage: 11TH MAINTENANCE DOSE
     Route: 065
     Dates: start: 20231205
  10. DIMETHINDENE [Suspect]
     Active Substance: DIMETHINDENE
     Indication: Product used for unknown indication
     Dosage: UNK
     Route: 065
  11. VARICELLA-ZOSTER VIRUS STRAIN OKA/MERCK LIVE ANTIGEN [Suspect]
     Active Substance: VARICELLA-ZOSTER VIRUS STRAIN OKA/MERCK LIVE ANTIGEN
     Indication: Product used for unknown indication
     Dosage: UNK
     Route: 065
  12. CORTISONE [Suspect]
     Active Substance: CORTISONE
     Indication: Peroneal nerve palsy
     Dosage: 1000 MILLIGRAM, QD
     Route: 042
     Dates: start: 20200206, end: 20200210
  13. CORTISONE [Suspect]
     Active Substance: CORTISONE
     Indication: Muscle spasticity
     Dosage: UNK, QD
     Route: 042
     Dates: start: 20211025, end: 20211108
  14. CORTISONE [Suspect]
     Active Substance: CORTISONE
     Indication: Peroneal nerve palsy
     Dosage: 60 MILLIGRAM
     Route: 037
     Dates: start: 20211121, end: 20211126
  15. CORTISONE [Suspect]
     Active Substance: CORTISONE
     Indication: Muscle spasticity
     Dosage: 60 MILLIGRAM
     Route: 037
     Dates: start: 20220822, end: 20220825
  16. CORTISONE [Suspect]
     Active Substance: CORTISONE
     Dosage: UNK
     Route: 037
     Dates: start: 20240219, end: 20240222
  17. IBUPROFEN [Concomitant]
     Active Substance: IBUPROFEN
     Dosage: UNK, PRN, AS REQUIRED
     Route: 065
  18. DULOXETINE [Concomitant]
     Active Substance: DULOXETINE
     Dosage: 90 MILLIGRAM, BID (1-0-1)
     Route: 065
  19. BACLOFEN [Concomitant]
     Active Substance: BACLOFEN
     Indication: Muscle spasticity
     Dosage: 15 MILLIGRAM, TID (1-1-1)
     Route: 048
  20. BACLOFEN [Concomitant]
     Active Substance: BACLOFEN
     Dosage: 10 MG, TID(ADMINISTRATION ON 1 DAY EVERY 2 WEEKS)
     Route: 065
  21. BACLOFEN [Concomitant]
     Active Substance: BACLOFEN
     Dosage: 10 MILLIGRAM, TID (1-1-1)
     Route: 048
  22. BOTOX [Concomitant]
     Active Substance: ONABOTULINUMTOXINA
     Indication: Muscle spasticity
     Dosage: UNK, Q3MONTHS (INTO THE RIGHT ARM)
     Route: 065
  23. METAMIZOLE [Concomitant]
     Active Substance: METAMIZOLE
     Dosage: UNK, PRN (AS NECESSARY)
     Route: 065

REACTIONS (24)
  - Clavicle fracture [Recovered/Resolved]
  - Peroneal nerve palsy [Recovering/Resolving]
  - Rib fracture [Recovered/Resolved]
  - Pelvic fracture [Recovered/Resolved]
  - Upper limb fracture [Recovered/Resolved]
  - Muscle spasticity [Recovering/Resolving]
  - Road traffic accident [Unknown]
  - Multiple sclerosis [Not Recovered/Not Resolved]
  - Femoral neck fracture [Recovered/Resolved]
  - Erythema [Recovered/Resolved]
  - Asthenia [Recovered/Resolved]
  - Fatigue [Recovered/Resolved]
  - Nasopharyngitis [Recovered/Resolved]
  - Balance disorder [Recovered/Resolved]
  - Neck pain [Not Recovered/Not Resolved]
  - Arthralgia [Not Recovered/Not Resolved]
  - Headache [Not Recovered/Not Resolved]
  - Swelling face [Recovered/Resolved]
  - Liver function test increased [Recovered/Resolved]
  - Initial insomnia [Recovered/Resolved]
  - Pain in extremity [Recovered/Resolved]
  - Bursitis [Recovered/Resolved]
  - Fall [Unknown]
  - B-lymphocyte count decreased [Recovered/Resolved]

NARRATIVE: CASE EVENT DATE: 20180222
